FAERS Safety Report 25336032 (Version 1)
Quarter: 2025Q2

REPORT INFORMATION
  Report Type: Spontaneous
  Country: IN (occurrence: None)
  Receive Date: 20250520
  Receipt Date: 20250520
  Transmission Date: 20250717
  Serious: Yes (Hospitalization)
  Sender: FDA-CTU
  Company Number: None

PATIENT
  Age: 21 Year
  Sex: Female
  Weight: 66 kg

DRUGS (6)
  1. FERRIC CARBOXYMALTOSE [Suspect]
     Active Substance: FERRIC CARBOXYMALTOSE
  2. IRON [Concomitant]
     Active Substance: IRON
  3. FOLIC ACID [Concomitant]
     Active Substance: FOLIC ACID
  4. Emiset [Concomitant]
  5. RANITIDINE HYDROCHLORIDE [Concomitant]
     Active Substance: RANITIDINE HYDROCHLORIDE
  6. PHENIRAMINE [Concomitant]
     Active Substance: PHENIRAMINE

REACTIONS (5)
  - Maternal exposure timing unspecified [None]
  - Vomiting [None]
  - Nausea [None]
  - Headache [None]
  - Hypersensitivity [None]

NARRATIVE: CASE EVENT DATE: 20250519
